FAERS Safety Report 7524446-8 (Version None)
Quarter: 2011Q2

REPORT INFORMATION
  Report Type: 
  Country: None (occurrence: None)
  Receive Date: 20110525
  Receipt Date: 20110510
  Transmission Date: 20111010
  Serious: Yes (Hospitalization, Other)
  Sender: FDA-Public Use
  Company Number: 2011MA005754

PATIENT
  Age: 32 Year
  Sex: Female

DRUGS (4)
  1. CLOMAZAPINE [Concomitant]
  2. LORAZEPAM [Suspect]
     Indication: BIPOLAR DISORDER
     Dosage: 1 MG;BID
  3. LITHIUM CARBONATE [Concomitant]
  4. BENZHEXOL [Concomitant]

REACTIONS (5)
  - HYPERNATRAEMIA [None]
  - NEUROLEPTIC MALIGNANT SYNDROME [None]
  - TREMOR [None]
  - SPLENIC LESION [None]
  - VERBAL ABUSE [None]
